FAERS Safety Report 6168940-3 (Version None)
Quarter: 2009Q2

REPORT INFORMATION
  Report Type: 
  Country: None (occurrence: None)
  Receive Date: 20090427
  Receipt Date: 20090416
  Transmission Date: 20091009
  Serious: Yes (Other)
  Sender: FDA-Public Use
  Company Number: PHHY2009BR14454

PATIENT
  Age: 26 Year
  Sex: Female

DRUGS (2)
  1. TRILEPTAL [Suspect]
     Dosage: 300 MG, BID
  2. TRILEPTAL [Suspect]
     Dosage: 300 MG BID + 600 MG QD

REACTIONS (2)
  - CONVULSION [None]
  - SLEEP DISORDER [None]
